FAERS Safety Report 16825635 (Version 1)
Quarter: 2019Q3

REPORT INFORMATION
  Report Type: Report from Study
  Country: MX (occurrence: MX)
  Receive Date: 20190919
  Receipt Date: 20190919
  Transmission Date: 20191005
  Serious: Yes (Other)
  Sender: FDA-Public Use
  Company Number: MX-ROCHE-2404697

PATIENT
  Sex: Female
  Weight: 74 kg

DRUGS (4)
  1. BRISTAFLAM [Concomitant]
  2. ROACTEMRA [Suspect]
     Active Substance: TOCILIZUMAB
     Indication: RHEUMATOID ARTHRITIS
     Route: 042
     Dates: start: 20190514, end: 20190808
  3. MOBICOX [Concomitant]
     Active Substance: MELOXICAM
  4. CORTISONA [Concomitant]
     Active Substance: HYDROCORTISONE

REACTIONS (6)
  - Pain [Not Recovered/Not Resolved]
  - Muscle contractions involuntary [Unknown]
  - Pharyngitis [Unknown]
  - Weight increased [Unknown]
  - Pain in extremity [Unknown]
  - Therapy non-responder [Unknown]
